FAERS Safety Report 20735706 (Version 3)
Quarter: 2022Q2

REPORT INFORMATION
  Report Type: Spontaneous
  Country: US (occurrence: US)
  Receive Date: 20220421
  Receipt Date: 20220505
  Transmission Date: 20220721
  Serious: Yes (Other)
  Sender: FDA-Public Use
  Company Number: US-PFIZER INC-202200560285

PATIENT
  Age: 74 Year
  Sex: Male

DRUGS (1)
  1. MORPHINE SULFATE [Suspect]
     Active Substance: MORPHINE SULFATE
     Indication: Analgesic therapy
     Dosage: 100 UG (2ML, 50 UG/ML)
     Route: 037

REACTIONS (3)
  - Priapism [Recovered/Resolved]
  - Urinary retention [Recovered/Resolved]
  - Pruritus [Recovered/Resolved]
